FAERS Safety Report 22033973 (Version 3)
Quarter: 2023Q1

REPORT INFORMATION
  Report Type: Report from Study
  Country: US (occurrence: US)
  Receive Date: 20230224
  Receipt Date: 20230328
  Transmission Date: 20230417
  Serious: Yes (Other)
  Sender: FDA-Public Use
  Company Number: US-ABBVIE-4315594

PATIENT
  Age: 58 Year
  Sex: Female
  Weight: 72.574 kg

DRUGS (9)
  1. RINVOQ [Suspect]
     Active Substance: UPADACITINIB
     Indication: Rheumatoid arthritis
     Dosage: STRENGTH- 15 MILLIGRAM
     Route: 048
     Dates: start: 202112, end: 202212
  2. RINVOQ [Suspect]
     Active Substance: UPADACITINIB
     Indication: Rheumatoid arthritis
     Dosage: STRENGTH- 15 MILLIGRAM
     Route: 048
     Dates: start: 202301
  3. MIRALAX [Concomitant]
     Active Substance: POLYETHYLENE GLYCOL 3350
     Indication: Product used for unknown indication
  4. IVERMECTIN [Concomitant]
     Active Substance: IVERMECTIN
     Indication: Product used for unknown indication
  5. ESTRADIOL [Concomitant]
     Active Substance: ESTRADIOL
     Indication: Product used for unknown indication
  6. ESTRADIOL [Concomitant]
     Active Substance: ESTRADIOL
     Indication: Product used for unknown indication
  7. ESTRADIOL [Concomitant]
     Active Substance: ESTRADIOL
     Indication: Product used for unknown indication
  8. FIBER [Concomitant]
     Indication: Product used for unknown indication
     Dosage: FIBER CHOICE
  9. METRONIDAZOLE [Concomitant]
     Active Substance: METRONIDAZOLE
     Indication: Product used for unknown indication

REACTIONS (13)
  - Cholelithiasis [Recovering/Resolving]
  - Infection [Unknown]
  - Stress [Unknown]
  - Blood urine present [Unknown]
  - Gastric disorder [Unknown]
  - Nasopharyngitis [Unknown]
  - Dyspepsia [Unknown]
  - Gallbladder disorder [Unknown]
  - Illness [Unknown]
  - Dizziness [Unknown]
  - Urinary tract infection [Recovered/Resolved]
  - Cholelithiasis [Unknown]
  - Pain [Unknown]

NARRATIVE: CASE EVENT DATE: 20221201
